FAERS Safety Report 20348765 (Version 2)
Quarter: 2022Q1

REPORT INFORMATION
  Report Type: Report from Study
  Country: JP (occurrence: JP)
  Receive Date: 20220119
  Receipt Date: 20220210
  Transmission Date: 20220423
  Serious: No
  Sender: FDA-Public Use
  Company Number: JP-SAKK-2022SA013502AA

PATIENT
  Age: 77 Year
  Sex: Male
  Weight: 55 kg

DRUGS (12)
  1. ISATUXIMAB [Suspect]
     Active Substance: ISATUXIMAB
     Indication: Plasma cell myeloma
     Dosage: 10 MG/KG, QW
     Route: 041
     Dates: start: 20201013, end: 20201027
  2. ISATUXIMAB [Suspect]
     Active Substance: ISATUXIMAB
     Dosage: 10 MG/KG, QOW
     Route: 041
     Dates: start: 20201125, end: 20210106
  3. DEXAMETHASONE [Concomitant]
     Active Substance: DEXAMETHASONE
     Indication: Plasma cell myeloma
     Dosage: DAILY DOSE 20 MG, QW
     Route: 065
     Dates: start: 20201013, end: 20201027
  4. DEXAMETHASONE [Concomitant]
     Active Substance: DEXAMETHASONE
     Dosage: DAILY DOSE 20 MG, QOW
     Route: 065
     Dates: start: 20201125, end: 20210106
  5. POMALIDOMIDE [Concomitant]
     Active Substance: POMALIDOMIDE
     Indication: Plasma cell myeloma
     Dosage: DAILY DOSE 4 MG
     Route: 065
     Dates: start: 20201013, end: 20201029
  6. POMALIDOMIDE [Concomitant]
     Active Substance: POMALIDOMIDE
     Dosage: DAILY DOSE 3.00 MG
     Route: 065
     Dates: start: 20201125, end: 20201215
  7. POMALIDOMIDE [Concomitant]
     Active Substance: POMALIDOMIDE
     Dosage: DAILY DOSE 3.00 MG
     Route: 065
     Dates: start: 20201223, end: 20210112
  8. ITRACONAZOLE [Concomitant]
     Active Substance: ITRACONAZOLE
     Indication: Infection prophylaxis
     Dosage: DAILY DOSE: 200 MG
     Route: 065
     Dates: start: 20190319
  9. SULFAMETHOXAZOLE\TRIMETHOPRIM [Concomitant]
     Active Substance: SULFAMETHOXAZOLE\TRIMETHOPRIM
     Indication: Infection prophylaxis
     Dosage: 2 TABLETS IN 2 DIVIDED DOSES, 2 DAYS A WEEK ON TUESDAYS AND FRIDAYS
     Route: 065
     Dates: start: 20150601
  10. HYDROCORTISONE [Concomitant]
     Active Substance: HYDROCORTISONE
     Indication: Prophylaxis
     Dosage: DAILY DOSE: 100 MG
     Route: 065
     Dates: start: 20201013, end: 20201013
  11. FAMOTIDINE [Concomitant]
     Active Substance: FAMOTIDINE
     Indication: Prophylaxis
     Dosage: DAILY DOSE 20 MG, QW
     Route: 065
     Dates: start: 20201013, end: 20201027
  12. FAMOTIDINE [Concomitant]
     Active Substance: FAMOTIDINE
     Dosage: DAILY DOSE 20 MG, QOW
     Route: 065
     Dates: start: 20201125, end: 20210106

REACTIONS (1)
  - No adverse event [Unknown]
